FAERS Safety Report 10873257 (Version 1)
Quarter: 2015Q1

REPORT INFORMATION
  Report Type: Spontaneous
  Country: IT (occurrence: IT)
  Receive Date: 20150227
  Receipt Date: 20150227
  Transmission Date: 20150721
  Serious: Yes (Other)
  Sender: FDA-Public Use
  Company Number: IT-DRREDDYS-GER/ITL/15/0046212

PATIENT
  Age: 48 Year
  Sex: Female

DRUGS (1)
  1. PANTOPRAZOLE [Suspect]
     Active Substance: PANTOPRAZOLE SODIUM
     Indication: PRODUCT USED FOR UNKNOWN INDICATION
     Route: 048
     Dates: start: 20150214, end: 20150214

REACTIONS (2)
  - Urticaria [Recovering/Resolving]
  - Vasospasm [Recovering/Resolving]

NARRATIVE: CASE EVENT DATE: 20150214
